FAERS Safety Report 5574059-2 (Version None)
Quarter: 2007Q4

REPORT INFORMATION
  Report Type: 
  Country: None (occurrence: None)
  Receive Date: 20071221
  Receipt Date: 20071212
  Transmission Date: 20080405
  Serious: Yes (Hospitalization)
  Sender: FDA-Public Use
  Company Number: 2007-169136-NL

PATIENT
  Age: 67 Year
  Sex: Female

DRUGS (3)
  1. DEXAMETHASONE TAB [Suspect]
     Dosage: ORAL
     Route: 048
  2. DOXORUBICIN HCL [Suspect]
     Indication: OVARIAN CANCER
     Dosage: INTRAVENOUS (NOS)
     Route: 042
     Dates: start: 20061102, end: 20061201
  3. DOMEPERIDONE [Concomitant]

REACTIONS (4)
  - ALVEOLITIS [None]
  - BRONCHITIS [None]
  - DYSPNOEA [None]
  - SKIN REACTION [None]
